FAERS Safety Report 6235550-9 (Version None)
Quarter: 2009Q2

REPORT INFORMATION
  Report Type: 
  Country: None (occurrence: None)
  Receive Date: 20090618
  Receipt Date: 20081215
  Transmission Date: 20091009
  Serious: No
  Sender: FDA-Public Use
  Company Number: US-ASTRAZENECA-2008UW27971

PATIENT
  Age: 72 Year
  Sex: Male
  Weight: 91.6 kg

DRUGS (4)
  1. RHINOCORT [Suspect]
     Indication: VERTIGO
     Dosage: 32 UG
     Route: 045
  2. COUMADIN [Concomitant]
  3. PATANASE [Concomitant]
  4. PROSTASOL [Concomitant]

REACTIONS (1)
  - BLOOD PRESSURE DECREASED [None]
